FAERS Safety Report 8831302 (Version 7)
Quarter: 2014Q1

REPORT INFORMATION
  Report Type: Report from Study
  Country: JP (occurrence: JP)
  Receive Date: 20121008
  Receipt Date: 20140115
  Transmission Date: 20141002
  Serious: Yes (Hospitalization, Other)
  Sender: FDA-Public Use
  Company Number: JP-VERTEX PHARMACEUTICAL INC.-2012-022355

PATIENT
  Age: 50 Year
  Sex: Male

DRUGS (14)
  1. VX-950 (TELAPREVIR) [Suspect]
     Indication: CHRONIC HEPATITIS C
     Dosage: 2250 MG, QD
     Route: 048
     Dates: start: 20120807, end: 20120825
  2. REBETOL [Suspect]
     Indication: CHRONIC HEPATITIS C
     Dosage: 800 MG, QD
     Route: 048
     Dates: start: 20120807, end: 20120825
  3. REBETOL [Suspect]
     Dosage: 400 MG, QD
     Route: 048
     Dates: start: 20120826, end: 20120827
  4. PEGINTRON [Suspect]
     Indication: CHRONIC HEPATITIS C
     Dosage: 1.5 ?G/KG, QW
     Route: 058
     Dates: start: 20120807, end: 20120819
  5. PEGINTRON [Suspect]
     Dosage: 1.3 ?G/KG, QW
     Route: 058
     Dates: start: 20120825, end: 20120825
  6. BARACLUDE [Concomitant]
     Dosage: 0.5 MG, QD
     Route: 048
  7. BENET [Concomitant]
     Dosage: 17.5 MG, WEEKLY
     Route: 048
     Dates: end: 20120819
  8. ZOMETA [Concomitant]
     Dosage: 3.3 MG, QD
     Route: 042
     Dates: start: 20120906, end: 20120906
  9. ZOMETA [Concomitant]
     Dosage: 4 MG/ MONTH
     Route: 042
     Dates: start: 20120929
  10. LOXONIN [Concomitant]
     Dosage: 180 MG, QD
     Route: 048
     Dates: start: 20120919, end: 20121002
  11. LOXONIN [Concomitant]
     Dosage: 60 MG, PRN
     Route: 048
     Dates: start: 20121003
  12. MUCOSTA [Concomitant]
     Dosage: 300 MG, QD
     Route: 048
     Dates: start: 20120919, end: 20121002
  13. MUCOSTA [Concomitant]
     Dosage: 100 MG, PRN
     Route: 048
     Dates: start: 20121003
  14. TRAMCET [Concomitant]
     Dosage: 1 TAB, PRN
     Route: 048
     Dates: start: 20120929

REACTIONS (5)
  - Renal failure acute [Recovered/Resolved]
  - Hypercalcaemia [Recovered/Resolved]
  - Blood alkaline phosphatase increased [Recovered/Resolved]
  - Off label use [Unknown]
  - Fibrous dysplasia of bone [Recovered/Resolved]
